FAERS Safety Report 9828796 (Version 2)
Quarter: 2014Q1

REPORT INFORMATION
  Report Type: Report from Study
  Country: ZA (occurrence: ZA)
  Receive Date: 20140118
  Receipt Date: 20140128
  Transmission Date: 20141002
  Serious: Yes (Death, Other)
  Sender: FDA-Public Use
  Company Number: ZA-ROCHE-1335428

PATIENT
  Age: 59 Year
  Sex: Female

DRUGS (2)
  1. MIRCERA [Suspect]
     Indication: NEPHROGENIC ANAEMIA
     Route: 058
     Dates: start: 201108
  2. MIRCERA [Suspect]
     Route: 058
     Dates: start: 201010

REACTIONS (2)
  - Death [Fatal]
  - Cerebrovascular accident [Unknown]
